FAERS Safety Report 19153522 (Version 2)
Quarter: 2021Q2

REPORT INFORMATION
  Report Type: Spontaneous
  Country: US (occurrence: US)
  Receive Date: 20210419
  Receipt Date: 20210607
  Transmission Date: 20210717
  Serious: No
  Sender: FDA-Public Use
  Company Number: US-BAYER-2021-124490

PATIENT
  Age: 41 Year
  Sex: Female

DRUGS (2)
  1. CLARITIN?D 24 HOUR [Suspect]
     Active Substance: LORATADINE\PSEUDOEPHEDRINE SULFATE
     Indication: HYPERSENSITIVITY
     Dosage: 1 DF
     Route: 048
     Dates: start: 20210401, end: 20210404
  2. CLARITIN?D 24 HOUR [Suspect]
     Active Substance: LORATADINE\PSEUDOEPHEDRINE SULFATE
     Indication: NASOPHARYNGITIS
     Dosage: 1 DF
     Route: 048
     Dates: start: 20210407, end: 20210407

REACTIONS (2)
  - Palpitations [Recovered/Resolved]
  - Palpitations [Recovered/Resolved]

NARRATIVE: CASE EVENT DATE: 20210407
